FAERS Safety Report 12849905 (Version 1)
Quarter: 2016Q4

REPORT INFORMATION
  Report Type: Spontaneous
  Country: US (occurrence: US)
  Receive Date: 20161014
  Receipt Date: 20161014
  Transmission Date: 20170207
  Serious: No
  Sender: FDA-Public Use
  Company Number: US-ROCHE-1747553

PATIENT
  Age: 80 Year
  Sex: Male
  Weight: 85.35 kg

DRUGS (2)
  1. ESBRIET [Suspect]
     Active Substance: PIRFENIDONE
     Route: 048
     Dates: start: 20160129, end: 20160421
  2. ESBRIET [Suspect]
     Active Substance: PIRFENIDONE
     Indication: IDIOPATHIC PULMONARY FIBROSIS
     Dosage: 3 CAPS
     Route: 048
     Dates: start: 20160201, end: 20160421

REACTIONS (5)
  - Pruritus [Recovered/Resolved]
  - Blister [Recovering/Resolving]
  - Rash erythematous [Recovered/Resolved]
  - Rash [Recovered/Resolved]
  - Skin exfoliation [Recovering/Resolving]

NARRATIVE: CASE EVENT DATE: 20160421
